FAERS Safety Report 8425061-4 (Version None)
Quarter: 2012Q2

REPORT INFORMATION
  Report Type: 
  Country: None (occurrence: None)
  Receive Date: 20120605
  Receipt Date: 20120605
  Transmission Date: 20120825
  Serious: No
  Sender: FDA-Public Use
  Company Number: None

PATIENT
  Age: 77 Year
  Sex: Female
  Weight: 79.3795 kg

DRUGS (1)
  1. RECLAST [Suspect]
     Dosage: 5 MG. YEARLY IV INFUSION
     Route: 042
     Dates: start: 20120202

REACTIONS (5)
  - DIPLOPIA [None]
  - EYE SWELLING [None]
  - HEADACHE [None]
  - CHILLS [None]
  - PAIN [None]
